FAERS Safety Report 8778997 (Version 1)
Quarter: 2012Q4

REPORT INFORMATION
  Report Type: 
  Country: US (occurrence: US)
  Receive Date: 20120912
  Receipt Date: 20120912
  Transmission Date: 20130627
  Serious: Yes (Other)
  Sender: FDA-Public Use
  Company Number: US-TEVA-357973USA

PATIENT
  Sex: Female

DRUGS (1)
  1. COPAXONE [Suspect]
     Indication: MULTIPLE SCLEROSIS
     Dates: start: 201201, end: 201206

REACTIONS (4)
  - Anaphylactic reaction [Unknown]
  - Dyspnoea [Unknown]
  - Swelling face [Unknown]
  - Swollen tongue [Unknown]
